FAERS Safety Report 8856572 (Version 1)
Quarter: 2012Q4

REPORT INFORMATION
  Report Type: Spontaneous
  Country: US (occurrence: None)
  Receive Date: 20121018
  Receipt Date: 20121018
  Transmission Date: 20130627
  Serious: Yes (Hospitalization)
  Sender: FDA-Public Use
  Company Number: DKLU1085171

PATIENT
  Age: 5 Month
  Sex: Male

DRUGS (1)
  1. SABRIL [Suspect]
     Indication: INFANTILE SPASMS
     Dosage: 100 mg milligram(s), 2 in 1 D, Oral
     Route: 048

REACTIONS (2)
  - Respiratory distress [None]
  - Respiratory tract infection [None]
